FAERS Safety Report 8085647 (Version 2)
Quarter: 2013Q1

REPORT INFORMATION
  Report Type: Spontaneous
  Country: US (occurrence: US)
  Receive Date: 20110811
  Receipt Date: 20130320
  Transmission Date: 20140127
  Serious: Yes (Hospitalization, Disabling, Congenital Anomaly, Other)
  Sender: FDA-Public Use
  Company Number: US-RB-031094-11

PATIENT
  Age: 1 Day
  Sex: Female

DRUGS (2)
  1. SUBUTEX [Suspect]
     Indication: DRUG DEPENDENCE
     Route: 064
     Dates: start: 20090402, end: 20090618
  2. PAXIL [Suspect]
     Indication: DEPRESSION
     Dosage: DOSAGE UNKNOWN
     Route: 064
     Dates: start: 2008, end: 2009

REACTIONS (3)
  - Foetal exposure during pregnancy [Recovered/Resolved]
  - Trisomy 21 [Not Recovered/Not Resolved]
  - Fallot^s tetralogy [Recovered/Resolved]
